FAERS Safety Report 7579562-1 (Version None)
Quarter: 2011Q2

REPORT INFORMATION
  Report Type: 
  Country: None (occurrence: None)
  Receive Date: 20110629
  Receipt Date: 20110622
  Transmission Date: 20111010
  Serious: Yes (Hospitalization, Other)
  Sender: FDA-Public Use
  Company Number: US-JNJFOC-20101004715

PATIENT
  Sex: Male

DRUGS (1)
  1. LEVAQUIN [Suspect]
     Indication: URINARY TRACT INFECTION
     Route: 048
     Dates: start: 20060101, end: 20081231

REACTIONS (4)
  - ROTATOR CUFF SYNDROME [None]
  - LIGAMENT RUPTURE [None]
  - TENDON RUPTURE [None]
  - TENOSYNOVITIS [None]
